FAERS Safety Report 25769974 (Version 1)
Quarter: 2025Q3

REPORT INFORMATION
  Report Type: Report from Study
  Country: EU (occurrence: EU)
  Receive Date: 20250907
  Receipt Date: 20250907
  Transmission Date: 20251020
  Serious: Yes (Death)
  Sender: RECORDATI
  Company Number: EU-ORPHANEU-2025006220

PATIENT
  Age: 24 Year
  Sex: Male

DRUGS (10)
  1. SILTUXIMAB [Suspect]
     Active Substance: SILTUXIMAB
     Indication: Cytokine release syndrome
  2. SILTUXIMAB [Suspect]
     Active Substance: SILTUXIMAB
     Indication: Immune effector cell-associated neurotoxicity syndrome
  3. SILTUXIMAB [Suspect]
     Active Substance: SILTUXIMAB
     Indication: Off label use
  4. ANAKINRA [Suspect]
     Active Substance: ANAKINRA
     Indication: Cytokine release syndrome
  5. ANAKINRA [Suspect]
     Active Substance: ANAKINRA
     Indication: Immune effector cell-associated neurotoxicity syndrome
  6. ANAKINRA [Suspect]
     Active Substance: ANAKINRA
     Indication: Immune effector cell-associated HLH-like syndrome
  7. DEXAMETHASONE [Suspect]
     Active Substance: DEXAMETHASONE
     Indication: Cytokine release syndrome
  8. DEXAMETHASONE [Suspect]
     Active Substance: DEXAMETHASONE
     Indication: Immune effector cell-associated neurotoxicity syndrome
  9. DEXAMETHASONE [Suspect]
     Active Substance: DEXAMETHASONE
     Indication: Immune effector cell-associated HLH-like syndrome
  10. TOCILIZUMAB [Suspect]
     Active Substance: TOCILIZUMAB
     Indication: Immune effector cell-associated neurotoxicity syndrome

REACTIONS (2)
  - Pneumocystis jirovecii pneumonia [Fatal]
  - Off label use [Recovered/Resolved]
